FAERS Safety Report 7268832-2 (Version None)
Quarter: 2011Q1

REPORT INFORMATION
  Report Type: 
  Country: None (occurrence: None)
  Receive Date: 20110201
  Receipt Date: 20110126
  Transmission Date: 20110831
  Serious: Yes (Hospitalization)
  Sender: FDA-Public Use
  Company Number: GB-PFIZER INC-2011019329

PATIENT
  Age: 89 Year
  Sex: Female

DRUGS (1)
  1. DETRUSITOL [Suspect]
     Dosage: 6 MG, 1X/DAY, 2MG IN THE MORNING AND 4 MG IN THE EVENING

REACTIONS (1)
  - HEPATIC FUNCTION ABNORMAL [None]
